FAERS Safety Report 8096858-8 (Version None)
Quarter: 2012Q1

REPORT INFORMATION
  Report Type: 
  Country: None (occurrence: None)
  Receive Date: 20120129
  Receipt Date: 20111228
  Transmission Date: 20120608
  Serious: No
  Sender: FDA-Public Use
  Company Number: US-ABBOTT-11P-163-0880696-00

PATIENT
  Age: 22 Year
  Sex: Female

DRUGS (5)
  1. ORTHO TRI-CYCLEN [Concomitant]
     Indication: CONTRACEPTION
     Dosage: ONCE DAILY
  2. HUMIRA [Suspect]
     Indication: COLITIS ULCERATIVE
     Dates: start: 20110919
  3. MULTI-VITAMINS [Concomitant]
     Indication: PRODUCT USED FOR UNKNOWN INDICATION
     Dosage: ONCE DAILY
  4. LIALDA [Concomitant]
     Indication: COLITIS ULCERATIVE
  5. PREDNISONE TAB [Concomitant]
     Indication: INFLAMMATION

REACTIONS (7)
  - INJECTION SITE SWELLING [None]
  - INJECTION SITE PAIN [None]
  - PRURITUS [None]
  - INJECTION SITE PAPULE [None]
  - INJECTION SITE OEDEMA [None]
  - INJECTION SITE ERYTHEMA [None]
  - INJECTION SITE PRURITUS [None]
